FAERS Safety Report 7944776-5 (Version None)
Quarter: 2011Q4

REPORT INFORMATION
  Report Type: 
  Country: None (occurrence: None)
  Receive Date: 20111129
  Receipt Date: 20111118
  Transmission Date: 20120403
  Serious: Yes (Other)
  Sender: FDA-Public Use
  Company Number: JP-BRISTOL-MYERS SQUIBB COMPANY-15835564

PATIENT
  Age: 35 Year
  Sex: Female

DRUGS (5)
  1. SELBEX [Concomitant]
     Dosage: GRANULES
  2. GASMOTIN [Concomitant]
     Dosage: TABS
  3. AKINETON [Concomitant]
     Dosage: TABS
  4. CLONAZEPAM [Concomitant]
     Dosage: TABS
  5. ABILIFY [Suspect]
     Indication: SCHIZOPHRENIA
     Dosage: ABILIFY TABS 12MG
     Route: 048
     Dates: start: 20070925

REACTIONS (2)
  - PREGNANCY [None]
  - ABORTION INDUCED [None]
